FAERS Safety Report 6121958-9 (Version None)
Quarter: 2009Q1

REPORT INFORMATION
  Report Type: 
  Country: None (occurrence: None)
  Receive Date: 20090316
  Receipt Date: 20090303
  Transmission Date: 20090719
  Serious: Yes (Hospitalization)
  Sender: FDA-Public Use
  Company Number: 2009-192540-NL

PATIENT
  Age: 19 Year
  Sex: Female
  Weight: 6305 kg

DRUGS (1)
  1. IMPLANON [Suspect]
     Indication: CONTRACEPTION
     Dosage: SUBDERMAL
     Route: 059
     Dates: start: 20080807

REACTIONS (11)
  - ABDOMINAL PAIN UPPER [None]
  - ACNE [None]
  - ACTIVITIES OF DAILY LIVING IMPAIRED [None]
  - CELLULITIS [None]
  - DEPRESSION [None]
  - DIZZINESS [None]
  - FEELING ABNORMAL [None]
  - HEADACHE [None]
  - MOOD SWINGS [None]
  - NAUSEA [None]
  - SUICIDE ATTEMPT [None]
